FAERS Safety Report 25482495 (Version 1)
Quarter: 2025Q2

REPORT INFORMATION
  Report Type: Spontaneous
  Country: US (occurrence: US)
  Receive Date: 20250626
  Receipt Date: 20250626
  Transmission Date: 20250717
  Serious: Yes (Hospitalization, Disabling, Congenital Anomaly, Other)
  Sender: SPECGX
  Company Number: US-SPECGX-T202501102

PATIENT
  Age: 71 Year
  Sex: Female

DRUGS (14)
  1. PAMELOR [Suspect]
     Active Substance: NORTRIPTYLINE HYDROCHLORIDE
     Indication: Headache
     Route: 065
  2. AYVAKIT [Suspect]
     Active Substance: AVAPRITINIB
     Indication: Systemic mastocytosis
     Dosage: 25 MILLIGRAM, QD
     Route: 048
     Dates: start: 202405
  3. AYVAKIT [Suspect]
     Active Substance: AVAPRITINIB
     Indication: Indolent systemic mastocytosis
  4. AYVAKIT [Suspect]
     Active Substance: AVAPRITINIB
     Indication: Indolent systemic mastocytosis
     Dosage: 25 MILLIGRAM, QD
     Route: 065
     Dates: start: 202406
  5. AYVAKIT [Suspect]
     Active Substance: AVAPRITINIB
     Indication: Systemic mastocytosis
     Route: 065
     Dates: start: 20240812
  6. AYVAKIT [Suspect]
     Active Substance: AVAPRITINIB
     Dosage: 25 MILLIGRAM, QD
     Route: 065
     Dates: start: 202501
  7. RISEDRONATE SODIUM [Concomitant]
     Active Substance: RISEDRONATE SODIUM
     Indication: Product used for unknown indication
     Route: 048
  8. ROSUVASTATIN [Concomitant]
     Active Substance: ROSUVASTATIN
     Indication: Hypercholesterolaemia
     Route: 048
  9. ROSUVASTATIN [Concomitant]
     Active Substance: ROSUVASTATIN
     Indication: Hypercholesterolaemia
     Route: 065
  10. UREA [Concomitant]
     Active Substance: UREA
     Indication: Product used for unknown indication
     Route: 061
  11. HYDROCHLOROTHIAZIDE [Concomitant]
     Active Substance: HYDROCHLOROTHIAZIDE
     Indication: Blood pressure management
     Route: 065
     Dates: start: 20240723
  12. PANTOPRAZOLE [Concomitant]
     Active Substance: PANTOPRAZOLE
     Indication: Gastrooesophageal reflux disease
     Route: 065
     Dates: start: 20240720
  13. PANTOPRAZOLE [Concomitant]
     Active Substance: PANTOPRAZOLE
     Route: 065
     Dates: start: 20240723
  14. KEPPRA [Concomitant]
     Active Substance: LEVETIRACETAM
     Indication: Product used for unknown indication
     Route: 065

REACTIONS (10)
  - Brain operation [Unknown]
  - Brain neoplasm [Not Recovered/Not Resolved]
  - Fall [Unknown]
  - Congenital neoplasm [Not Recovered/Not Resolved]
  - Colloid brain cyst [Unknown]
  - Joint injury [Recovered/Resolved]
  - Head injury [Recovered/Resolved]
  - Headache [Unknown]
  - Adverse event [Unknown]
  - Product use in unapproved indication [Unknown]

NARRATIVE: CASE EVENT DATE: 20240809
